FAERS Safety Report 13200391 (Version 1)
Quarter: 2017Q1

REPORT INFORMATION
  Report Type: Other
  Country: GB (occurrence: US)
  Receive Date: 20170208
  Receipt Date: 20170208
  Transmission Date: 20170428
  Serious: Yes (Hospitalization, Other)
  Sender: FDA-Public Use
  Company Number: US-INTERNATIONAL MEDICATION SYSTEMS, LIMITED-1062901

PATIENT
  Age: 45 Year
  Sex: Female

DRUGS (4)
  1. SALINE [Concomitant]
     Active Substance: SODIUM CHLORIDE
  2. BETAMETHASONE. [Suspect]
     Active Substance: BETAMETHASONE
  3. METHYLPREDNISOLONE. [Suspect]
     Active Substance: METHYLPREDNISOLONE
  4. LIDOCAINE 0.5% [Suspect]
     Active Substance: LIDOCAINE
     Indication: BACK PAIN
     Route: 039

REACTIONS (9)
  - Nausea [Recovered/Resolved]
  - Meningitis chemical [None]
  - Vomiting [Recovered/Resolved]
  - Photophobia [Recovered/Resolved]
  - Incorrect route of drug administration [Unknown]
  - Dizziness [Recovered/Resolved]
  - Pneumocephalus [None]
  - Gait disturbance [Recovered/Resolved]
  - Headache [Recovered/Resolved]
